FAERS Safety Report 6240913-1 (Version None)
Quarter: 2009Q2

REPORT INFORMATION
  Report Type: 
  Country: None (occurrence: None)
  Receive Date: 20090623
  Receipt Date: 20090611
  Transmission Date: 20091009
  Serious: Yes (Hospitalization, Other)
  Sender: FDA-Public Use
  Company Number: US-AVENTIS-200915268US

PATIENT
  Age: 66 Year
  Sex: Female

DRUGS (3)
  1. LANTUS [Suspect]
     Route: 058
     Dates: start: 20081201
  2. LANTUS [Suspect]
     Dosage: DOSE: 10-15
     Route: 058
  3. LANTUS [Suspect]
     Dosage: DOSE: UNK
     Route: 058

REACTIONS (3)
  - BLOOD GLUCOSE DECREASED [None]
  - BLOOD GLUCOSE INCREASED [None]
  - CARDIAC FAILURE CONGESTIVE [None]
